FAERS Safety Report 4423864-4 (Version None)
Quarter: 2004Q3

REPORT INFORMATION
  Report Type: 
  Country: None (occurrence: None)
  Receive Date: 20040715
  Receipt Date: 20040223
  Transmission Date: 20050211
  Serious: Yes (Hospitalization)
  Sender: FDA-Public Use
  Company Number: 2004200363US

PATIENT
  Sex: Female

DRUGS (7)
  1. CELEBREX [Suspect]
     Dosage: 1-2 A DAY
  2. GLUCOVANCE [Concomitant]
  3. ISORDIL [Concomitant]
  4. ATENOLOL [Concomitant]
  5. PRAVACHOL [Concomitant]
  6. TEMAZEPAM [Concomitant]
  7. DARVOCET-N 100 [Concomitant]

REACTIONS (2)
  - DIARRHOEA HAEMORRHAGIC [None]
  - GASTROINTESTINAL HAEMORRHAGE [None]
